FAERS Safety Report 5419216-0 (Version None)
Quarter: 2007Q3

REPORT INFORMATION
  Report Type: 
  Country: None (occurrence: None)
  Receive Date: 20070815
  Receipt Date: 20070730
  Transmission Date: 20080115
  Serious: Yes (Hospitalization)
  Sender: FDA-Public Use
  Company Number: 5726/6033657

PATIENT
  Age: 39 Year
  Sex: Female

DRUGS (5)
  1. METFORMIN HCL [Suspect]
     Indication: DIABETES MELLITUS
     Dosage: 2000 MG (2000 MG, 1 D)
     Dates: start: 20060911, end: 20070501
  2. METFORMIN HCL [Suspect]
     Indication: DIABETES MELLITUS
     Dosage: 2000 MG (2000 MG, 1 D)
     Dates: start: 20070503
  3. ASPIRIN [Concomitant]
  4. ACETAMINOPHEN [Concomitant]
  5. PHENERGAN [Concomitant]

REACTIONS (4)
  - ABDOMINAL DISTENSION [None]
  - CHEST PAIN [None]
  - HYPERHIDROSIS [None]
  - NAUSEA [None]
